FAERS Safety Report 6689021-6 (Version None)
Quarter: 2010Q2

REPORT INFORMATION
  Report Type: 
  Country: None (occurrence: None)
  Receive Date: 20100420
  Receipt Date: 20100412
  Transmission Date: 20101027
  Serious: Yes (Hospitalization)
  Sender: FDA-Public Use
  Company Number: PHHY2010CH22490

PATIENT
  Age: 75 Year
  Sex: Female

DRUGS (1)
  1. ZOMETA [Suspect]
     Dosage: 4 INFUSIONS OF 4 MG ON 4 CONSECUTIVE DAYS
     Route: 042
     Dates: start: 20100319

REACTIONS (4)
  - BLOOD PHOSPHORUS DECREASED [None]
  - DRUG ADMINISTRATION ERROR [None]
  - OVERDOSE [None]
  - TETANY [None]
